FAERS Safety Report 9289403 (Version 4)
Quarter: 2013Q4

REPORT INFORMATION
  Report Type: Spontaneous
  Country: US (occurrence: US)
  Receive Date: 20130514
  Receipt Date: 20131216
  Transmission Date: 20140711
  Serious: Yes (Hospitalization, Other)
  Sender: FDA-Public Use
  Company Number: US-GILEAD-2013-0075075

PATIENT
  Sex: Female

DRUGS (3)
  1. LETAIRIS [Suspect]
     Indication: PULMONARY ARTERIAL HYPERTENSION
     Dosage: 5 MG, QD
     Dates: start: 20130213
  2. ADCIRCA [Concomitant]
  3. REMODULIN [Concomitant]

REACTIONS (4)
  - Myocardial infarction [Unknown]
  - Surgery [Unknown]
  - Pneumonia [Unknown]
  - Cardiac failure congestive [Unknown]
